FAERS Safety Report 8537666-0 (Version None)
Quarter: 2012Q3

REPORT INFORMATION
  Report Type: 
  Country: None (occurrence: None)
  Receive Date: 20120725
  Receipt Date: 20120721
  Transmission Date: 20120928
  Serious: Yes (Hospitalization)
  Sender: FDA-Public Use
  Company Number: PHEH2012US014376

PATIENT
  Sex: Male

DRUGS (2)
  1. SIMVASTATIN [Concomitant]
     Indication: BLOOD CHOLESTEROL
     Dosage: UNK UKN, UNK
  2. DIOVAN HCT [Suspect]
     Dosage: 160/25 MG, QD
     Dates: start: 20090721

REACTIONS (2)
  - HERPES ZOSTER [None]
  - BLOOD PRESSURE INCREASED [None]
